FAERS Safety Report 10047485 (Version 2)
Quarter: 2014Q2

REPORT INFORMATION
  Report Type: Report from Study
  Country: US (occurrence: US)
  Receive Date: 20140331
  Receipt Date: 20140409
  Transmission Date: 20141212
  Serious: Yes (Hospitalization)
  Sender: FDA-Public Use
  Company Number: US-ASTELLAS-2014US003114

PATIENT
  Age: 24 Year
  Sex: 0

DRUGS (5)
  1. ERLOTINIB TABLET [Suspect]
     Indication: COLORECTAL CANCER
     Dosage: 150 MG, UID/QD
     Route: 048
     Dates: start: 20140207, end: 20140320
  2. PANITUMUMAB [Suspect]
     Indication: COLORECTAL CANCER
     Dosage: 6 MG/KG, Q2W
     Route: 042
     Dates: start: 20140207, end: 20140307
  3. REMERON [Concomitant]
     Indication: PRODUCT USED FOR UNKNOWN INDICATION
     Dosage: 45 MG, UID/QD
     Route: 065
  4. MINOCYCLINE [Concomitant]
     Indication: PRODUCT USED FOR UNKNOWN INDICATION
     Dosage: 100 MG, Q12 HOURS
     Route: 065
  5. ACLOVATE [Concomitant]
     Indication: PRODUCT USED FOR UNKNOWN INDICATION
     Dosage: 0.5 %, BID
     Route: 061

REACTIONS (3)
  - Anaemia [Recovered/Resolved]
  - Colonic fistula [Not Recovered/Not Resolved]
  - Small intestinal obstruction [Not Recovered/Not Resolved]
